FAERS Safety Report 17022176 (Version 1)
Quarter: 2019Q4

REPORT INFORMATION
  Report Type: Spontaneous
  Country: US (occurrence: US)
  Receive Date: 20191008
  Receipt Date: 20191008
  Transmission Date: 20200122
  Serious: Yes (Hospitalization, Other)
  Sender: FDA-Public Use
  Company Number: None

PATIENT
  Age: 77 Year
  Sex: Female

DRUGS (1)
  1. IBRANCE [Suspect]
     Active Substance: PALBOCICLIB
     Route: 048
     Dates: start: 201812

REACTIONS (6)
  - Haemoglobin decreased [None]
  - Salivary hypersecretion [None]
  - Dyspepsia [None]
  - White blood cell count decreased [None]
  - Sleep disorder [None]
  - Stomatitis [None]

NARRATIVE: CASE EVENT DATE: 20190201
